FAERS Safety Report 15866153 (Version 4)
Quarter: 2019Q1

REPORT INFORMATION
  Report Type: Report from Study
  Country: DE (occurrence: DE)
  Receive Date: 20190125
  Receipt Date: 20190325
  Transmission Date: 20190417
  Serious: Yes (Other)
  Sender: FDA-Public Use
  Company Number: DE-ROCHE-2249873

PATIENT
  Age: 46 Year
  Sex: Female

DRUGS (7)
  1. CLINDAMYCIN. [Suspect]
     Active Substance: CLINDAMYCIN
     Indication: SKIN BACTERIAL INFECTION
     Route: 048
  2. L-THYROXIN [Concomitant]
     Active Substance: LEVOTHYROXINE SODIUM
  3. OCREVUS [Suspect]
     Active Substance: OCRELIZUMAB
     Route: 042
     Dates: start: 20181015
  4. VALETTE [Concomitant]
     Active Substance: DIENOGEST\ETHINYL ESTRADIOL
  5. RAMILICH [Concomitant]
     Active Substance: RAMIPRIL
     Route: 065
  6. OCREVUS [Suspect]
     Active Substance: OCRELIZUMAB
     Indication: RELAPSING-REMITTING MULTIPLE SCLEROSIS
     Route: 042
     Dates: start: 20181001
  7. VIGANTOLETTEN [Concomitant]
     Active Substance: CHOLECALCIFEROL
     Route: 065

REACTIONS (4)
  - Abscess [Recovering/Resolving]
  - Dyspepsia [Recovered/Resolved]
  - Rash [Recovering/Resolving]
  - Skin bacterial infection [Recovering/Resolving]

NARRATIVE: CASE EVENT DATE: 20181001
